FAERS Safety Report 5088627-8 (Version None)
Quarter: 2006Q3

REPORT INFORMATION
  Report Type: 
  Country: None (occurrence: None)
  Receive Date: 20060825
  Receipt Date: 20060814
  Transmission Date: 20061208
  Serious: Yes (Other)
  Sender: FDA-Public Use
  Company Number: DE-BRISTOL-MYERS SQUIBB COMPANY-13476734

PATIENT
  Age: 65 Year
  Sex: Male

DRUGS (10)
  1. CARBOPLATIN [Suspect]
     Indication: MANTLE CELL LYMPHOMA
  2. ETOPOSIDE [Suspect]
     Indication: MANTLE CELL LYMPHOMA
  3. TREOSULFAN [Suspect]
     Indication: MULTIPLE MYELOMA
  4. PANTOPRAZOLE SODIUM [Concomitant]
  5. CIPROFLOXACIN [Concomitant]
  6. FLUCONAZOLE [Concomitant]
  7. DEXAMETHASONE [Concomitant]
  8. GRANISETRON  HCL [Concomitant]
  9. HEPARIN [Concomitant]
  10. AMINO ACIDS [Concomitant]

REACTIONS (1)
  - PERICARDITIS [None]
